FAERS Safety Report 8274376-1 (Version None)
Quarter: 2012Q1

REPORT INFORMATION
  Report Type: 
  Country: None (occurrence: None)
  Receive Date: 20120309
  Receipt Date: 20120105
  Transmission Date: 20120608
  Serious: Yes (Other)
  Sender: FDA-Public Use
  Company Number: PHEH2012US000786

PATIENT
  Age: 62 Year
  Sex: Male

DRUGS (2)
  1. VALTURNA [Suspect]
     Dosage: 1 DF, DAILY
  2. TEKTURNA HCT [Suspect]
     Dosage: 1 DF, AT NIGHT

REACTIONS (4)
  - BLOOD ALBUMIN INCREASED [None]
  - RENAL IMPAIRMENT [None]
  - BLOOD CREATININE INCREASED [None]
  - HYPOKALAEMIA [None]
